FAERS Safety Report 8810747 (Version 1)
Quarter: 2012Q4

REPORT INFORMATION
  Report Type: Spontaneous
  Country: KR (occurrence: None)
  Receive Date: 20120920
  Receipt Date: 20120920
  Transmission Date: 20130627
  Serious: Yes (Other)
  Sender: FDA-Public Use
  Company Number: DSA_59518_2012

PATIENT

DRUGS (4)
  1. FLUOROURACIL (FLUOROURACIL) [Suspect]
     Indication: GASTRIC CANCER
     Dosage: 2000 mg/m2; Every other week Intravenous (not otherwise specified))
     Route: 042
  2. LEUCOVORIN [Suspect]
     Dosage: 100 mg/m2; Every other week Intravenous (not otherwise specified))
  3. IRINOTECAN [Suspect]
     Dosage: 150 mg/m2; Every other week Intravenous (not otherwise specified))
  4. ANTIEMETICS AND ANTINAUSEANTS [Concomitant]

REACTIONS (2)
  - Toxicity to various agents [None]
  - Mucosal inflammation [None]
